FAERS Safety Report 25477852 (Version 1)
Quarter: 2025Q2

REPORT INFORMATION
  Report Type: Spontaneous
  Country: GB (occurrence: GB)
  Receive Date: 20250625
  Receipt Date: 20250625
  Transmission Date: 20250716
  Serious: Yes (Other)
  Sender: ESPERION THERAPEUTICS
  Company Number: None

PATIENT

DRUGS (17)
  1. BEMPEDOIC ACID [Suspect]
     Active Substance: BEMPEDOIC ACID
     Indication: Product used for unknown indication
     Dosage: 180 MG, QD
     Route: 065
     Dates: start: 20250605
  2. AMOXICILLIN [Concomitant]
     Active Substance: AMOXICILLIN
     Indication: Ill-defined disorder
     Dosage: TAKE ONE CAPSULE THREE TIMES A DAY FOR 5 DAYS, ...
     Route: 065
     Dates: start: 20250325, end: 20250330
  3. CLARITHROMYCIN [Concomitant]
     Active Substance: CLARITHROMYCIN
     Indication: Ill-defined disorder
     Dosage: TAKE ONE TABLET TWICE A DAY FOR 5 DAYS, TO TREA...
     Route: 065
     Dates: start: 20250325, end: 20250330
  4. LANSOPRAZOLE [Concomitant]
     Active Substance: LANSOPRAZOLE
     Indication: Ill-defined disorder
     Dosage: TAKE ONE TWICE  DAILY FOR 4 WEEKS
     Route: 065
     Dates: start: 20250312, end: 20250605
  5. FLUTICASONE FUROATE [Concomitant]
     Active Substance: FLUTICASONE FUROATE
     Indication: Ill-defined disorder
     Dosage: USE ONCE DAILY
     Route: 065
     Dates: start: 20250403
  6. COCODAMOL [Concomitant]
     Active Substance: ACETAMINOPHEN\CODEINE PHOSPHATE
     Indication: Ill-defined disorder
     Route: 065
     Dates: start: 20250224
  7. TAMSULOSIN HYDROCHLORIDE [Concomitant]
     Active Substance: TAMSULOSIN HYDROCHLORIDE
     Indication: Ill-defined disorder
     Dosage: TAKE ONE DAILY
     Route: 065
     Dates: start: 20250224
  8. AMITRIPTYLINE HYDROCHLORIDE [Concomitant]
     Active Substance: AMITRIPTYLINE HYDROCHLORIDE
     Indication: Ill-defined disorder
     Route: 065
     Dates: start: 20250312
  9. CATHEJELL L [Concomitant]
     Indication: Ill-defined disorder
     Route: 065
     Dates: start: 20250312
  10. CAVERJECT [Concomitant]
     Active Substance: ALPROSTADIL
     Indication: Ill-defined disorder
     Route: 065
     Dates: start: 20250312
  11. EZETIMIBE [Concomitant]
     Active Substance: EZETIMIBE
     Indication: Ill-defined disorder
     Dosage: TAKE ONE DAILY
     Route: 065
     Dates: start: 20250312, end: 20250605
  12. PENILENTE [Concomitant]
     Indication: Ill-defined disorder
     Route: 065
     Dates: start: 20250312
  13. POLYETHYLENE GLYCOL 3350\POTASSIUM CHLORIDE\SODIUM BICARBONATE\SODIUM [Concomitant]
     Active Substance: POLYETHYLENE GLYCOL 3350\POTASSIUM CHLORIDE\SODIUM BICARBONATE\SODIUM CHLORIDE
     Indication: Ill-defined disorder
     Route: 065
     Dates: start: 20250312
  14. LIBRA [Concomitant]
     Indication: Ill-defined disorder
     Route: 065
     Dates: start: 20250312
  15. SODIUM ALGINATE [Concomitant]
     Active Substance: SODIUM ALGINATE
     Indication: Ill-defined disorder
     Route: 065
     Dates: start: 20250312
  16. ALPROSTADIL [Concomitant]
     Active Substance: ALPROSTADIL
     Indication: Ill-defined disorder
     Route: 065
     Dates: start: 20250312
  17. FAMOTIDINE [Concomitant]
     Active Substance: FAMOTIDINE
     Indication: Ill-defined disorder
     Route: 065
     Dates: start: 20250605

REACTIONS (1)
  - Myalgia [Recovering/Resolving]
